FAERS Safety Report 4898982-7 (Version None)
Quarter: 2006Q1

REPORT INFORMATION
  Report Type: 
  Country: None (occurrence: None)
  Receive Date: 20060202
  Receipt Date: 20060124
  Transmission Date: 20060701
  Serious: Yes (Hospitalization)
  Sender: FDA-Public Use
  Company Number: JP-MERCK-0601USA03258

PATIENT
  Age: 78 Year
  Sex: Female

DRUGS (2)
  1. SINGULAIR [Suspect]
     Indication: ASTHMA
     Route: 048
  2. [THERAPY UNSPECIFIED] [Concomitant]
     Route: 051

REACTIONS (3)
  - ALLERGIC GRANULOMATOUS ANGIITIS [None]
  - ASTHMA [None]
  - CONDITION AGGRAVATED [None]
